FAERS Safety Report 7088863-5 (Version None)
Quarter: 2010Q4

REPORT INFORMATION
  Report Type: 
  Country: None (occurrence: None)
  Receive Date: 20101108
  Receipt Date: 20101104
  Transmission Date: 20110411
  Serious: Yes (Other)
  Sender: FDA-Public Use
  Company Number: JP-PFIZER INC-2010116927

PATIENT
  Age: 53 Year
  Sex: Male
  Weight: 58 kg

DRUGS (1)
  1. CHAMPIX [Suspect]
     Indication: SMOKING CESSATION THERAPY
     Dosage: 1 MG, 2X/DAY
     Route: 048
     Dates: start: 20100801, end: 20100916

REACTIONS (8)
  - ANXIETY [None]
  - DEPRESSION [None]
  - HEADACHE [None]
  - MOOD ALTERED [None]
  - NIGHTMARE [None]
  - PRINZMETAL ANGINA [None]
  - SOMNOLENCE [None]
  - SUICIDAL IDEATION [None]
